FAERS Safety Report 13354181 (Version 1)
Quarter: 2017Q1

REPORT INFORMATION
  Report Type: Spontaneous
  Country: US (occurrence: US)
  Receive Date: 20170321
  Receipt Date: 20170321
  Transmission Date: 20170429
  Serious: No
  Sender: FDA-Public Use
  Company Number: US-PFIZER INC-2017116069

PATIENT
  Age: 18 Year
  Sex: Female

DRUGS (1)
  1. ADVIL COLD AND SINUS [Suspect]
     Active Substance: IBUPROFEN\PSEUDOEPHEDRINE HYDROCHLORIDE

REACTIONS (8)
  - Asthenia [Unknown]
  - Pyrexia [Unknown]
  - Secretion discharge [Unknown]
  - Dysgeusia [Unknown]
  - Decreased appetite [Unknown]
  - Neck pain [Unknown]
  - Pain [Unknown]
  - Vomiting [Unknown]
